FAERS Safety Report 6499857-2 (Version None)
Quarter: 2009Q4

REPORT INFORMATION
  Report Type: 
  Country: None (occurrence: None)
  Receive Date: 20091214
  Receipt Date: 20091214
  Transmission Date: 20100525
  Serious: No
  Sender: FDA-Public Use
  Company Number: None

PATIENT
  Age: 50 Year
  Sex: Female
  Weight: 89.3586 kg

DRUGS (1)
  1. DOXYCYCLINE HYCLATE [Suspect]
     Indication: UPPER RESPIRATORY TRACT INFECTION
     Dosage: 1 CAPSULE TWICE A DAY PO
     Route: 048
     Dates: start: 20091204, end: 20091210

REACTIONS (5)
  - ABDOMINAL PAIN [None]
  - DIARRHOEA [None]
  - DYSPHAGIA [None]
  - OROPHARYNGEAL DISCOMFORT [None]
  - VULVOVAGINAL MYCOTIC INFECTION [None]
